FAERS Safety Report 15564816 (Version 10)
Quarter: 2020Q1

REPORT INFORMATION
  Report Type: Spontaneous
  Country: US (occurrence: US)
  Receive Date: 20181030
  Receipt Date: 20200303
  Transmission Date: 20200409
  Serious: Yes (Other)
  Sender: FDA-Public Use
  Company Number: US-PFIZER INC-2018438614

PATIENT
  Age: 77 Year
  Sex: Female

DRUGS (1)
  1. XELJANZ [Suspect]
     Active Substance: TOFACITINIB CITRATE
     Indication: RHEUMATOID ARTHRITIS
     Dosage: 5 MG, 2X/DAY
     Route: 048
     Dates: start: 20180717, end: 20200212

REACTIONS (14)
  - Weight decreased [Unknown]
  - Dysgeusia [Unknown]
  - Food refusal [Unknown]
  - Colon cancer [Unknown]
  - Dizziness [Unknown]
  - Decreased appetite [Unknown]
  - Back pain [Unknown]
  - Hypertonic bladder [Unknown]
  - Pruritus [Unknown]
  - Condition aggravated [Unknown]
  - Drug ineffective [Unknown]
  - Pain [Unknown]
  - Dry mouth [Unknown]
  - Blood count abnormal [Unknown]

NARRATIVE: CASE EVENT DATE: 2018
